FAERS Safety Report 7474656-3 (Version None)
Quarter: 2011Q1

REPORT INFORMATION
  Report Type: 
  Country: None (occurrence: None)
  Receive Date: 20110302
  Receipt Date: 20100709
  Transmission Date: 20110831
  Serious: Yes (Death, Hospitalization)
  Sender: FDA-Public Use
  Company Number: 163-21880-10042064

PATIENT
  Age: 81 Year
  Sex: Female

DRUGS (12)
  1. DEXAMETHASONE [Concomitant]
  2. VICODIN [Concomitant]
  3. REVLIMID [Suspect]
     Indication: PLASMACYTOSIS
     Dosage: 15 MG, DAILY FOR 21 DAYS, PO
     Route: 048
     Dates: start: 20090101, end: 20100401
  4. FENTANYL [Concomitant]
  5. METOPROLOL TARTRATE [Concomitant]
  6. PHENERGAN HCL [Concomitant]
  7. MULTIVITAMIN [Concomitant]
  8. PRILOSEC [Concomitant]
  9. BUPROPION (BUPROPION) [Concomitant]
  10. REGLAN [Concomitant]
  11. FLECAINIDE ACETATE [Concomitant]
  12. NEURONTIN [Concomitant]

REACTIONS (7)
  - SMALL INTESTINAL OBSTRUCTION [None]
  - ATRIAL FIBRILLATION [None]
  - LEFT VENTRICULAR DYSFUNCTION [None]
  - CARDIAC FAILURE CONGESTIVE [None]
  - ACUTE RESPIRATORY FAILURE [None]
  - PNEUMONIA [None]
  - BONE MARROW FAILURE [None]
